FAERS Safety Report 4691126-6 (Version None)
Quarter: 2005Q2

REPORT INFORMATION
  Report Type: 
  Country: None (occurrence: None)
  Receive Date: 20050610
  Receipt Date: 20050525
  Transmission Date: 20051028
  Serious: Yes (Hospitalization)
  Sender: FDA-Public Use
  Company Number: DSA_26482_2005

PATIENT
  Age: 29 Year
  Sex: Female

DRUGS (3)
  1. TAVOR [Suspect]
     Dosage: 37.5 MG ONCE PO
     Route: 048
     Dates: start: 20050520, end: 20050520
  2. HOGGAR N [Suspect]
     Dosage: 500 MG ONCE PO
     Route: 048
     Dates: start: 20050520, end: 20050520
  3. BEER/WINE [Suspect]
     Dosage: 1 BOTTLE ONCE PO
     Route: 048
     Dates: start: 20050520, end: 20050520

REACTIONS (4)
  - DEPRESSED LEVEL OF CONSCIOUSNESS [None]
  - INTENTIONAL MISUSE [None]
  - MYDRIASIS [None]
  - SOMNOLENCE [None]
